FAERS Safety Report 25238532 (Version 1)
Quarter: 2025Q2

REPORT INFORMATION
  Report Type: Spontaneous
  Country: SK (occurrence: SK)
  Receive Date: 20250425
  Receipt Date: 20250425
  Transmission Date: 20250717
  Serious: Yes (Other)
  Sender: BOEHRINGER INGELHEIM
  Company Number: SK-Merck Healthcare KGaA-2025018903

PATIENT
  Age: 79 Year
  Sex: Male

DRUGS (5)
  1. TELMISARTAN [Suspect]
     Active Substance: TELMISARTAN
     Indication: Product used for unknown indication
  2. BISOPROLOL [Suspect]
     Active Substance: BISOPROLOL
     Indication: Product used for unknown indication
  3. FUROSEMIDE [Suspect]
     Active Substance: FUROSEMIDE
     Indication: Product used for unknown indication
  4. EPLERENONE [Suspect]
     Active Substance: EPLERENONE
     Indication: Product used for unknown indication
  5. RIVAROXABAN [Suspect]
     Active Substance: RIVAROXABAN
     Indication: Product used for unknown indication

REACTIONS (6)
  - Cardiac amyloidosis [Unknown]
  - Primary amyloidosis [Unknown]
  - Dyspnoea at rest [Unknown]
  - Exercise tolerance decreased [Unknown]
  - Oedema peripheral [Unknown]
  - Venous pressure jugular increased [Unknown]
